FAERS Safety Report 19274817 (Version 1)
Quarter: 2021Q2

REPORT INFORMATION
  Report Type: Spontaneous
  Country: US (occurrence: US)
  Receive Date: 20210519
  Receipt Date: 20210519
  Transmission Date: 20210717
  Serious: Yes (Hospitalization)
  Sender: FDA-Public Use
  Company Number: None

PATIENT
  Sex: Female

DRUGS (20)
  1. FUROSEMIDE. [Concomitant]
     Active Substance: FUROSEMIDE
  2. LEVOTHYROXIN [Concomitant]
     Active Substance: LEVOTHYROXINE
  3. IRON [Concomitant]
     Active Substance: IRON
  4. ADCIRCA [Concomitant]
     Active Substance: TADALAFIL
  5. OMEPRAZOLE. [Concomitant]
     Active Substance: OMEPRAZOLE
  6. GABAPENTIN. [Concomitant]
     Active Substance: GABAPENTIN
  7. XALKORI [Concomitant]
     Active Substance: CRIZOTINIB
  8. TABRECTA [Concomitant]
     Active Substance: CAPMATINIB
  9. PANTOPRAZOLE [Concomitant]
     Active Substance: PANTOPRAZOLE
  10. SERTRALINE [Concomitant]
     Active Substance: SERTRALINE HYDROCHLORIDE
  11. AMBRISENTAN [Suspect]
     Active Substance: AMBRISENTAN
     Indication: COR PULMONALE
     Route: 048
     Dates: start: 20191024
  12. TYVASO SOL [Concomitant]
  13. LOPERAMIDE [Concomitant]
     Active Substance: LOPERAMIDE
  14. XIFAXAN [Concomitant]
     Active Substance: RIFAXIMIN
  15. ASPIRIN. [Concomitant]
     Active Substance: ASPIRIN
  16. FLUTICASONE. [Concomitant]
     Active Substance: FLUTICASONE
  17. CETIRIZINE [Concomitant]
     Active Substance: CETIRIZINE HYDROCHLORIDE
  18. HYDROMORPHON [Concomitant]
     Active Substance: HYDROMORPHONE
  19. RANITIDINE. [Concomitant]
     Active Substance: RANITIDINE
  20. POTASSIMIN [Concomitant]

REACTIONS (1)
  - Pain management [None]
